FAERS Safety Report 8549340-5 (Version None)
Quarter: 2012Q3

REPORT INFORMATION
  Report Type: 
  Country: None (occurrence: None)
  Receive Date: 20120730
  Receipt Date: 20120718
  Transmission Date: 20120928
  Serious: Yes (Hospitalization, Other)
  Sender: FDA-Public Use
  Company Number: JP-ROCHE-1006831

PATIENT
  Sex: Female
  Weight: 45 kg

DRUGS (9)
  1. ALOXI [Concomitant]
     Route: 041
     Dates: start: 20110828, end: 20110926
  2. DEXAMETHASONE SODIUM PHOSPHATE [Concomitant]
     Route: 041
     Dates: start: 20110828, end: 20110926
  3. GANATON [Concomitant]
     Route: 048
     Dates: start: 20110926
  4. OXALIPLATIN [Concomitant]
     Indication: RECTAL CANCER
     Route: 041
     Dates: start: 20110828, end: 20110926
  5. FAMOTIDINE [Concomitant]
     Route: 048
     Dates: start: 20110926
  6. XELODA [Suspect]
     Indication: RECTAL CANCER
     Route: 048
     Dates: start: 20110829, end: 20110911
  7. XELODA [Suspect]
     Route: 048
     Dates: start: 20110926, end: 20111009
  8. PYDOXAL [Concomitant]
     Route: 048
     Dates: start: 20110829
  9. MEROPENEM [Suspect]
     Indication: INFECTION PROPHYLAXIS
     Dosage: DOSAGE IS UNCERTAIN.
     Route: 041
     Dates: start: 20111014, end: 20111018

REACTIONS (7)
  - DISSEMINATED INTRAVASCULAR COAGULATION [None]
  - NEUTROPENIA [None]
  - ACUTE HEPATIC FAILURE [None]
  - INCONTINENCE [None]
  - PLATELET COUNT DECREASED [None]
  - ALTERED STATE OF CONSCIOUSNESS [None]
  - VOMITING [None]
